FAERS Safety Report 23242092 (Version 1)
Quarter: 2023Q4

REPORT INFORMATION
  Report Type: Spontaneous
  Country: CA (occurrence: CA)
  Receive Date: 20231129
  Receipt Date: 20231129
  Transmission Date: 20240110
  Serious: Yes (Other)
  Sender: FDA-Public Use
  Company Number: CA-FreseniusKabi-FK202319215

PATIENT
  Age: 45 Year
  Sex: Female

DRUGS (3)
  1. CLINDAMYCIN HYDROCHLORIDE [Suspect]
     Active Substance: CLINDAMYCIN HYDROCHLORIDE
     Indication: Product used for unknown indication
     Route: 065
  2. ADENINE\DEXTROSE\MANNITOL\SODIUM CHLORIDE [Suspect]
     Active Substance: ADENINE\DEXTROSE\MANNITOL\SODIUM CHLORIDE
     Indication: Haemoglobin decreased
     Dosage: 275ML
     Route: 042
  3. DILAUDID [Suspect]
     Active Substance: HYDROMORPHONE HYDROCHLORIDE
     Indication: Product used for unknown indication
     Route: 065

REACTIONS (17)
  - Blood pressure diastolic increased [Unknown]
  - Blood pressure systolic decreased [Unknown]
  - Blood urine present [Unknown]
  - Chills [Unknown]
  - Cough [Unknown]
  - Culture positive [Unknown]
  - Disease progression [Unknown]
  - Heart rate increased [Unknown]
  - Hyperhidrosis [Unknown]
  - Lung opacity [Unknown]
  - Lymphadenopathy [Unknown]
  - Micrococcus infection [Unknown]
  - Oxygen saturation increased [Unknown]
  - Product contamination microbial [Unknown]
  - Productive cough [Unknown]
  - Pyrexia [Unknown]
  - Respiratory rate decreased [Unknown]
